FAERS Safety Report 23041319 (Version 2)
Quarter: 2025Q1

REPORT INFORMATION
  Report Type: Spontaneous
  Country: ES (occurrence: ES)
  Receive Date: 20231007
  Receipt Date: 20250327
  Transmission Date: 20250409
  Serious: Yes (Hospitalization, Other)
  Sender: AUROBINDO
  Company Number: ES-GLAXOSMITHKLINE-ES2023EME132623

PATIENT
  Age: 54 Year
  Sex: Female

DRUGS (2)
  1. AMOXICILLIN [Suspect]
     Active Substance: AMOXICILLIN
     Indication: Product used for unknown indication
     Route: 065
  2. IBUPROFEN [Suspect]
     Active Substance: IBUPROFEN
     Indication: Tension headache
     Route: 065

REACTIONS (4)
  - Meningitis aseptic [Recovered/Resolved]
  - Meningism [Recovered/Resolved]
  - Drug hypersensitivity [Unknown]
  - Accidental exposure to product [Unknown]
